FAERS Safety Report 9915863 (Version 1)
Quarter: 2014Q1

REPORT INFORMATION
  Report Type: Spontaneous
  Country: FR (occurrence: None)
  Receive Date: 20140218
  Receipt Date: 20140218
  Transmission Date: 20141002
  Serious: Yes (Hospitalization)
  Sender: FDA-Public Use
  Company Number: 7268867

PATIENT
  Sex: 0

DRUGS (8)
  1. PREVISCAN (FLUINDIONE) [Suspect]
     Indication: PULMONARY ARTERIAL HYPERTENSION
     Dosage: (1-1-3/4) ORAL
     Route: 048
     Dates: start: 2004
  2. LEVOTHYROX (LEVOTHYROXINE SODIUM) (LEVOTHYROXINE SODIUM) [Suspect]
     Indication: THYROID DISORDER
     Route: 048
     Dates: start: 2004
  3. REVATIO [Suspect]
     Indication: PRODUCT USED FOR UNKNOWN INDICATION
     Route: 048
     Dates: start: 2004
  4. AMBRISENTAN [Suspect]
     Indication: PULMONARY ARTERIAL HYPERTENSION
     Route: 048
     Dates: start: 2010
  5. CACIT D3 [Suspect]
     Indication: MINERAL SUPPLEMENTATION
     Route: 048
  6. LASILIX [Suspect]
     Indication: HYPERTENSION
     Route: 048
     Dates: start: 2004
  7. DIFFU K (POTASSIUM CHLORIDE) (POTASSIUM CHLORIDE) [Suspect]
     Indication: MINERAL SUPPLEMENTATION
     Dosage: 2-2-1
     Route: 048
     Dates: start: 2005
  8. INEXIUM [Suspect]
     Indication: PRODUCT USED FOR UNKNOWN INDICATION
     Dates: start: 2013, end: 2014

REACTIONS (1)
  - Neutropenia [None]
